FAERS Safety Report 5356939-6 (Version None)
Quarter: 2007Q2

REPORT INFORMATION
  Report Type: 
  Country: None (occurrence: None)
  Receive Date: 20070614
  Receipt Date: 20070607
  Transmission Date: 20071010
  Serious: Yes (Hospitalization)
  Sender: FDA-Public Use
  Company Number: PHHO2007CL07370

PATIENT
  Age: 69 Year
  Sex: Male
  Weight: 87 kg

DRUGS (2)
  1. NATEGLINIDE [Suspect]
     Indication: GLUCOSE TOLERANCE IMPAIRED
     Dosage: CODE NOT BROKEN
     Route: 048
     Dates: start: 20030209
  2. VALSARTAN [Suspect]
     Indication: CARDIOVASCULAR DISORDER
     Dosage: CODE NOT BROKEN
     Route: 048
     Dates: start: 20030209

REACTIONS (9)
  - ANGINA UNSTABLE [None]
  - ARTERIAL INJURY [None]
  - ARTERIAL OCCLUSIVE DISEASE [None]
  - CARDIAC ENZYMES INCREASED [None]
  - CHEST PAIN [None]
  - DISEASE PROGRESSION [None]
  - GLUCOSE TOLERANCE IMPAIRED [None]
  - MYOCARDIAL INFARCTION [None]
  - VASCULAR BYPASS GRAFT [None]
